FAERS Safety Report 8183383-9 (Version None)
Quarter: 2012Q1

REPORT INFORMATION
  Report Type: 
  Country: None (occurrence: None)
  Receive Date: 20120305
  Receipt Date: 20120220
  Transmission Date: 20120608
  Serious: Yes (Hospitalization, Other)
  Sender: FDA-Public Use
  Company Number: JP-MYLANLABS-2012S1001532

PATIENT
  Age: 56 Year
  Sex: Female
  Weight: 57.8 kg

DRUGS (11)
  1. CARBOPLATIN [Suspect]
     Indication: OVARIAN CANCER STAGE II
     Dosage: DOSE UNIT:250 UNKNOWN
     Route: 041
     Dates: start: 20110804, end: 20111221
  2. RESTAMIN /00000402/ [Concomitant]
     Indication: PREMEDICATION
     Route: 048
     Dates: start: 20110804, end: 20111221
  3. LOXOPROFEN [Concomitant]
     Indication: PROPHYLAXIS
     Route: 048
  4. DECADRON [Concomitant]
     Indication: PROPHYLAXIS
     Dates: start: 20110805, end: 20110805
  5. GOSHAJINKIGAN [Concomitant]
     Indication: PROPHYLAXIS
     Route: 048
     Dates: start: 20110916, end: 20110916
  6. GRANISETRON [Concomitant]
     Indication: PREMEDICATION
     Route: 048
     Dates: start: 20110804, end: 20111221
  7. GASTER /00706001/ [Concomitant]
     Indication: PREMEDICATION
     Route: 042
     Dates: start: 20110804, end: 20111221
  8. METHYCOBAL [Concomitant]
     Indication: PROPHYLAXIS
     Route: 048
     Dates: start: 20110916, end: 20110916
  9. DEXAMETHASONE SODIUM PHOSPHATE [Concomitant]
     Indication: PREMEDICATION
     Route: 048
     Dates: start: 20110804, end: 20111221
  10. PACLITAXEL [Suspect]
     Indication: OVARIAN CANCER STAGE II
     Dosage: DOSE UNIT:600 UNKNOWN
     Route: 041
     Dates: start: 20110804, end: 20111221
  11. TAXOTERE [Suspect]
     Indication: OVARIAN CANCER STAGE II
     Route: 041
     Dates: start: 20111031, end: 20111031

REACTIONS (3)
  - ANGIOPATHY [None]
  - VENOUS THROMBOSIS LIMB [None]
  - INJECTION SITE INDURATION [None]
